FAERS Safety Report 5660294-1 (Version None)
Quarter: 2008Q1

REPORT INFORMATION
  Report Type: 
  Country: None (occurrence: None)
  Receive Date: 20080306
  Receipt Date: 20080225
  Transmission Date: 20080703
  Serious: Yes (Other)
  Sender: FDA-Public Use
  Company Number: 2008S1000059

PATIENT
  Age: 55 Year
  Sex: Female

DRUGS (2)
  1. ACITRETIN [Suspect]
     Indication: PSORIASIS
     Dosage: 25 MG; QD; PO; 1 MG/KG; PO; 25 MG; QD; PO
     Route: 048
  2. ACITRETIN [Suspect]
     Indication: PSORIASIS
     Dosage: 25 MG; QD; PO; 1 MG/KG; PO; 25 MG; QD; PO
     Route: 048

REACTIONS (2)
  - DRUG INEFFECTIVE [None]
  - MUCOUS MEMBRANE DISORDER [None]
